FAERS Safety Report 16141085 (Version 1)
Quarter: 2019Q2

REPORT INFORMATION
  Report Type: Spontaneous
  Country: US (occurrence: US)
  Receive Date: 20190401
  Receipt Date: 20190401
  Transmission Date: 20190711
  Serious: No
  Sender: FDA-Public Use
  Company Number: US-PFIZER INC-2019124853

PATIENT
  Sex: Female

DRUGS (2)
  1. GABAPENTIN. [Suspect]
     Active Substance: GABAPENTIN
     Dosage: 300 MG, UNK
  2. GABAPENTIN. [Suspect]
     Active Substance: GABAPENTIN
     Indication: NECK PAIN
     Dosage: 100 MG, UNK (IN THE MORNING)

REACTIONS (7)
  - Hypoaesthesia [Unknown]
  - Feeling abnormal [Unknown]
  - Vision blurred [Unknown]
  - Paraesthesia [Unknown]
  - Headache [Unknown]
  - Product use in unapproved indication [Unknown]
  - Anxiety [Unknown]
